FAERS Safety Report 18891358 (Version 1)
Quarter: 2021Q1

REPORT INFORMATION
  Report Type: Spontaneous
  Country: US (occurrence: US)
  Receive Date: 20210215
  Receipt Date: 20210215
  Transmission Date: 20210420
  Serious: No
  Sender: FDA-Public Use
  Company Number: US-CELLTRION INC.-2020US033436

PATIENT

DRUGS (2)
  1. TRUXIMA [Suspect]
     Active Substance: RITUXIMAB-ABBS
     Dosage: 709 MG 84 D
     Dates: start: 20201028
  2. TRUXIMA [Suspect]
     Active Substance: RITUXIMAB-ABBS
     Indication: HAEMOLYTIC ANAEMIA
     Dosage: 709 MG 84 D
     Dates: start: 20200805

REACTIONS (1)
  - Off label use [Unknown]
